FAERS Safety Report 25612222 (Version 1)
Quarter: 2025Q3

REPORT INFORMATION
  Report Type: Spontaneous
  Country: US (occurrence: US)
  Receive Date: 20250728
  Receipt Date: 20250728
  Transmission Date: 20251021
  Serious: No
  Sender: SANOFI AVENTIS
  Company Number: US-SA-2025SA212056

PATIENT
  Sex: Female

DRUGS (1)
  1. DUPIXENT [Suspect]
     Active Substance: DUPILUMAB
     Indication: Dermatitis atopic
     Dosage: 300 MG, QOW
     Route: 058
     Dates: start: 202407

REACTIONS (7)
  - Sinus disorder [Unknown]
  - Condition aggravated [Unknown]
  - Eye disorder [Unknown]
  - Urticaria [Unknown]
  - Therapeutic response shortened [Unknown]
  - Eye pruritus [Unknown]
  - Dry eye [Unknown]
